FAERS Safety Report 13240271 (Version 1)
Quarter: 2017Q1

REPORT INFORMATION
  Report Type: Spontaneous
  Country: US (occurrence: US)
  Receive Date: 20170216
  Receipt Date: 20170216
  Transmission Date: 20170428
  Serious: No
  Sender: FDA-Public Use
  Company Number: US-RELYPSA-RLY2016003931

PATIENT
  Sex: Female

DRUGS (18)
  1. VELTASSA [Suspect]
     Active Substance: PATIROMER
     Dosage: INCREASED DOSING
     Route: 048
     Dates: start: 2016
  2. VOLTAREN [Concomitant]
     Active Substance: DICLOFENAC SODIUM
  3. NOVOLOG [Concomitant]
     Active Substance: INSULIN ASPART
  4. HYDROXYCHLOROQUINE SULFATE. [Concomitant]
     Active Substance: HYDROXYCHLOROQUINE SULFATE
  5. L THYROXINE [Concomitant]
     Active Substance: LEVOTHYROXINE SODIUM
  6. VALSARTAN. [Concomitant]
     Active Substance: VALSARTAN
  7. KIONEX [Concomitant]
     Active Substance: SODIUM POLYSTYRENE SULFONATE
  8. LANTUS [Concomitant]
     Active Substance: INSULIN GLARGINE
  9. ERGOCALCIFEROL. [Concomitant]
     Active Substance: ERGOCALCIFEROL
  10. FENOFIBRATE. [Concomitant]
     Active Substance: FENOFIBRATE
  11. LOVENOX [Concomitant]
     Active Substance: ENOXAPARIN SODIUM
  12. SYNTHROID [Concomitant]
     Active Substance: LEVOTHYROXINE SODIUM
  13. DIGOXIN. [Concomitant]
     Active Substance: DIGOXIN
  14. FOLIC ACID. [Concomitant]
     Active Substance: FOLIC ACID
  15. VITAMIN D2 [Concomitant]
     Active Substance: ERGOCALCIFEROL
  16. VELTASSA [Suspect]
     Active Substance: PATIROMER
     Indication: HYPERKALAEMIA
     Dosage: 8.4 G, QD
     Route: 048
     Dates: start: 20161025, end: 2016
  17. PREDNISONE. [Concomitant]
     Active Substance: PREDNISONE
  18. TRICOR                             /00090101/ [Concomitant]
     Active Substance: ADENOSINE

REACTIONS (1)
  - Blood potassium increased [Unknown]

NARRATIVE: CASE EVENT DATE: 2016
